FAERS Safety Report 7352348-9 (Version None)
Quarter: 2011Q1

REPORT INFORMATION
  Report Type: 
  Country: None (occurrence: None)
  Receive Date: 20110309
  Receipt Date: 20110309
  Transmission Date: 20110831
  Serious: No
  Sender: FDA-Public Use
  Company Number: None

PATIENT
  Age: 75 Year
  Sex: Male
  Weight: 72.5755 kg

DRUGS (1)
  1. ACYCLOVIR [Suspect]
     Indication: HERPES ZOSTER
     Dosage: 800MG 5X/DAY PO
     Route: 048
     Dates: start: 20110224, end: 20110225

REACTIONS (3)
  - CONFUSIONAL STATE [None]
  - LETHARGY [None]
  - DIARRHOEA [None]
